FAERS Safety Report 4613190-2 (Version None)
Quarter: 2005Q1

REPORT INFORMATION
  Report Type: 
  Country: None (occurrence: None)
  Receive Date: 20050315
  Receipt Date: 20050302
  Transmission Date: 20050727
  Serious: Yes (Hospitalization)
  Sender: FDA-Public Use
  Company Number: 2003188224JP

PATIENT
  Age: 85 Year
  Sex: Female

DRUGS (5)
  1. AROMASIN [Suspect]
     Indication: BREAST CANCER
     Dosage: 25 MG (25 MG, DAILY), ORAL
     Route: 048
     Dates: start: 20031113, end: 20031128
  2. AMLODIPINE BESYLATE [Concomitant]
  3. BOPINDOLOL (BOPINDOLOL) [Concomitant]
  4. PRAVASTATIN SODIUM [Concomitant]
  5. PROPIVERINE HYDROCHLORIDE         (PROPIVERINE HYDROCHLORIDE) [Concomitant]

REACTIONS (10)
  - ALANINE AMINOTRANSFERASE INCREASED [None]
  - ASPARTATE AMINOTRANSFERASE INCREASED [None]
  - BLOOD ALKALINE PHOSPHATASE INCREASED [None]
  - CONJUNCTIVITIS [None]
  - CONTACT LENS COMPLICATION [None]
  - HEPATIC FUNCTION ABNORMAL [None]
  - LIVER DISORDER [None]
  - NEUTROPENIA [None]
  - OCULAR HYPERAEMIA [None]
  - WHITE BLOOD CELL COUNT DECREASED [None]
